FAERS Safety Report 7380838-1 (Version None)
Quarter: 2011Q1

REPORT INFORMATION
  Report Type: 
  Country: None (occurrence: None)
  Receive Date: 20110329
  Receipt Date: 20110322
  Transmission Date: 20110831
  Serious: Yes (Life-Threatening, Hospitalization)
  Sender: FDA-Public Use
  Company Number: B0703505A

PATIENT
  Sex: Male
  Weight: 81 kg

DRUGS (2)
  1. MALARONE [Concomitant]
     Indication: MALARIA PROPHYLAXIS
     Dosage: 1UNIT PER DAY
     Route: 048
     Dates: start: 20110115
  2. ZYBAN [Suspect]
     Dosage: 150MG SEE DOSAGE TEXT
     Route: 048
     Dates: start: 20110114, end: 20110214

REACTIONS (8)
  - SUICIDAL IDEATION [None]
  - NERVOUSNESS [None]
  - AGGRESSION [None]
  - AMNESIA [None]
  - ANXIETY [None]
  - AFFECTIVE DISORDER [None]
  - SUICIDE ATTEMPT [None]
  - IRRITABILITY [None]
